FAERS Safety Report 10450607 (Version 1)
Quarter: 2014Q3

REPORT INFORMATION
  Report Type: Spontaneous
  Country: JP (occurrence: JP)
  Receive Date: 20140912
  Receipt Date: 20140912
  Transmission Date: 20150326
  Serious: Yes (Other)
  Sender: FDA-Public Use
  Company Number: PHHY2013JP162147

PATIENT
  Age: 19 Year
  Sex: Female

DRUGS (4)
  1. RITAROKS [Concomitant]
     Dosage: UNK UKN, UNK
  2. NEORAL [Suspect]
     Active Substance: CYCLOSPORINE
     Indication: RENAL HYPOPLASIA
     Dosage: UNK UKN, UNK
  3. PREDONINE [Concomitant]
     Active Substance: PREDNISOLONE\PREDNISOLONE ACETATE\PREDNISOLONE SODIUM SUCCINATE
     Dosage: UNK UKN, UNK
  4. CELLCEPT [Concomitant]
     Active Substance: MYCOPHENOLATE MOFETIL\MYCOPHENOLATE MOFETIL HYDROCHLORIDE
     Dosage: UNK UKN, UNK

REACTIONS (2)
  - Cytomegalovirus test positive [Unknown]
  - Arteriosclerosis [Unknown]
